FAERS Safety Report 8872141 (Version 1)
Quarter: 2012Q4

REPORT INFORMATION
  Report Type: 
  Country: US (occurrence: US)
  Receive Date: 20121030
  Receipt Date: 20121030
  Transmission Date: 20130627
  Serious: No
  Sender: FDA-Public Use
  Company Number: US-VERTEX PHARMACEUTICAL INC.-2012-023351

PATIENT
  Age: 48 Year
  Sex: Male
  Weight: 93 kg

DRUGS (7)
  1. INCIVEK [Suspect]
     Indication: HEPATITIS C
     Dosage: 750 mg, tid
     Route: 048
     Dates: start: 20120921, end: 20120930
  2. RIBAVIRIN [Suspect]
     Indication: HEPATITIS C
     Dosage: 400 mg, bid
     Route: 048
     Dates: start: 20120921, end: 20120930
  3. PEGASYS [Suspect]
     Indication: HEPATITIS C
     Dosage: 180 ?g, qw
     Route: 058
     Dates: start: 20120921, end: 20120930
  4. GABAPENTIN [Concomitant]
     Indication: CONVULSION
     Dosage: 600 mg, bid
     Route: 048
  5. AMLODIPINE [Concomitant]
     Indication: HYPERTENSION
     Dosage: 5 mg, qd
     Route: 048
  6. LISINOPRIL [Concomitant]
     Indication: HYPERTENSION
     Dosage: 20 mg, qd
     Route: 048
  7. PAXIL [Concomitant]
     Indication: DEPRESSION
     Dosage: 40 mg, qd
     Route: 048

REACTIONS (1)
  - Rash generalised [Not Recovered/Not Resolved]
